FAERS Safety Report 4272204-2 (Version None)
Quarter: 2004Q1

REPORT INFORMATION
  Report Type: 
  Country: None (occurrence: None)
  Receive Date: 20040114
  Receipt Date: 20040107
  Transmission Date: 20041129
  Serious: Yes (Other)
  Sender: FDA-Public Use
  Company Number: 2003-11-1874

PATIENT
  Age: 59 Year
  Sex: Male
  Weight: 70.3075 kg

DRUGS (1)
  1. ALBUTEROL [Suspect]
     Indication: RESPIRATORY DISORDER
     Dosage: PRN ORAL AER INH
     Route: 055

REACTIONS (3)
  - DYSPNOEA [None]
  - THROAT IRRITATION [None]
  - THROAT TIGHTNESS [None]
